FAERS Safety Report 16533745 (Version 1)
Quarter: 2019Q3

REPORT INFORMATION
  Report Type: Spontaneous
  Country: US (occurrence: US)
  Receive Date: 20190705
  Receipt Date: 20190705
  Transmission Date: 20191004
  Serious: Yes (Hospitalization, Other)
  Sender: FDA-Public Use
  Company Number: US-JNJFOC-20190634744

PATIENT
  Age: 57 Year
  Sex: Female
  Weight: 75.28 kg

DRUGS (4)
  1. OPSUMIT [Concomitant]
     Active Substance: MACITENTAN
     Dosage: UNK
  2. ADEMPAS [Suspect]
     Active Substance: RIOCIGUAT
     Indication: PULMONARY ARTERIAL HYPERTENSION
     Dosage: UNK
     Route: 048
     Dates: start: 20170526
  3. XARELTO [Suspect]
     Active Substance: RIVAROXABAN
     Indication: PRODUCT USED FOR UNKNOWN INDICATION
     Dosage: UNK
     Route: 048
  4. ADEMPAS [Suspect]
     Active Substance: RIOCIGUAT
     Dosage: 2.0 MG, TID
     Route: 048

REACTIONS (5)
  - Catheterisation cardiac [Unknown]
  - Vomiting [Unknown]
  - Catheter site haemorrhage [Unknown]
  - Fatigue [Unknown]
  - Respiratory disorder [Unknown]

NARRATIVE: CASE EVENT DATE: 201906
